FAERS Safety Report 4553185-0 (Version None)
Quarter: 2005Q1

REPORT INFORMATION
  Report Type: 
  Country: None (occurrence: None)
  Receive Date: 20050113
  Receipt Date: 20050104
  Transmission Date: 20050727
  Serious: No
  Sender: FDA-Public Use
  Company Number: 2005UW00116

PATIENT
  Age: 68 Year
  Sex: Female
  Weight: 117.9352 kg

DRUGS (3)
  1. PRILOSEC [Suspect]
     Indication: ERUCTATION
     Dosage: 1 DF BID PO
     Route: 048
     Dates: end: 20041229
  2. PRILOSEC [Suspect]
     Indication: LIVER DISORDER
     Dosage: 1 DF BID PO
     Route: 048
     Dates: end: 20041229
  3. METFORMIN HCL [Concomitant]

REACTIONS (1)
  - CONVULSION [None]
